FAERS Safety Report 24550320 (Version 1)
Quarter: 2024Q4

REPORT INFORMATION
  Report Type: Spontaneous
  Country: US (occurrence: US)
  Receive Date: 20241025
  Receipt Date: 20241025
  Transmission Date: 20250115
  Serious: No
  Sender: SUNOVION
  Company Number: US-SMPA-2024SPA004153AA

PATIENT

DRUGS (1)
  1. GEMTESA [Suspect]
     Active Substance: VIBEGRON
     Indication: Urinary incontinence
     Dosage: 75 MG, QD
     Route: 048
     Dates: start: 20241004, end: 202410

REACTIONS (1)
  - Pain in extremity [Not Recovered/Not Resolved]

NARRATIVE: CASE EVENT DATE: 20241001
